FAERS Safety Report 7941238-6 (Version None)
Quarter: 2011Q4

REPORT INFORMATION
  Report Type: 
  Country: None (occurrence: None)
  Receive Date: 20111128
  Receipt Date: 20111115
  Transmission Date: 20120403
  Serious: Yes (Life-Threatening, Hospitalization, Other)
  Sender: FDA-Public Use
  Company Number: JP-AMGEN-JPNSP2011021300

PATIENT
  Age: 74 Year
  Sex: Female
  Weight: 46.5 kg

DRUGS (18)
  1. ETANERCEPT [Suspect]
     Dosage: 25 MG, 2 TIMES/WK
     Route: 058
     Dates: start: 20081111, end: 20091106
  2. RHEUMATREX [Suspect]
     Dosage: 8 MG, WEEKLY
     Dates: start: 20091110, end: 20100107
  3. FLUCONAZOLE [Concomitant]
     Dosage: 1 DF, UNK
  4. RHEUMATREX [Suspect]
     Dosage: 2 MG FOUR TIMES WEEKLY
     Route: 048
     Dates: start: 20080408, end: 20081110
  5. INFREE [Concomitant]
     Indication: RHEUMATOID ARTHRITIS
     Dosage: 200 MG, 2X/DAY
     Route: 048
     Dates: start: 20060531, end: 20110408
  6. DEPAS [Concomitant]
     Dosage: 2 DF, 1X/DAY
  7. RHEUMATREX [Suspect]
     Dosage: 10 MG, WEEKLY
     Route: 048
     Dates: start: 20100108, end: 20110227
  8. ETANERCEPT [Suspect]
     Indication: RHEUMATOID ARTHRITIS
     Dosage: 25 MG, WEEKLY
     Dates: start: 20100601, end: 20110408
  9. RHEUMATREX [Suspect]
     Indication: RHEUMATOID ARTHRITIS
     Dosage: 2 MG TWICE WEEKLY
     Route: 048
     Dates: start: 20070302, end: 20080114
  10. RIMATIL [Concomitant]
     Dosage: 100 MG, 1X/DAY
     Route: 048
  11. HYDROCORTISONE [Concomitant]
     Dosage: UNK
  12. RHEUMATREX [Suspect]
     Dosage: 2 MG, THREE TIMES WEEKLY
     Route: 048
     Dates: start: 20080115, end: 20080407
  13. OMEPRAZOLE [Concomitant]
     Dosage: 20 MG, UNK
  14. SULFAMETHOXAZOLE AND TRIMETHOPRIM [Concomitant]
     Dosage: 0.5 DF, 1X/DAY
  15. AMOBAN [Concomitant]
     Dosage: 1 DF, UNK
  16. RHEUMATREX [Suspect]
     Dosage: 4 MG 3 TIMES WEEKLY
     Route: 048
     Dates: start: 20110228, end: 20110408
  17. MUCOSTA [Concomitant]
     Indication: GASTRITIS PROPHYLAXIS
     Dosage: 100 MG, 2X/DAY
     Route: 048
     Dates: start: 20060531, end: 20110408
  18. PREDNISOLONE [Concomitant]
     Indication: RHEUMATOID ARTHRITIS
     Dosage: 2 MG, 1X/DAY
     Route: 048
     Dates: start: 20070209, end: 20110408

REACTIONS (7)
  - WEIGHT DECREASED [None]
  - MYELODYSPLASTIC SYNDROME [None]
  - TINEA INFECTION [None]
  - STOMATITIS [None]
  - RASH GENERALISED [None]
  - GLOSSITIS [None]
  - ACUTE MYELOID LEUKAEMIA [None]
